FAERS Safety Report 16255857 (Version 3)
Quarter: 2020Q4

REPORT INFORMATION
  Report Type: Spontaneous
  Country: US (occurrence: US)
  Receive Date: 20190430
  Receipt Date: 20201007
  Transmission Date: 20210113
  Serious: No
  Sender: FDA-Public Use
  Company Number: US-PFIZER INC-2019176770

PATIENT
  Age: 67 Year
  Sex: Female
  Weight: 102.94 kg

DRUGS (1)
  1. ARTHROTEC [Suspect]
     Active Substance: DICLOFENAC SODIUM\MISOPROSTOL
     Indication: OSTEOARTHRITIS
     Dosage: 75MG/200MCG, 2X/DAY
     Route: 048

REACTIONS (1)
  - Discomfort [Unknown]
